FAERS Safety Report 18899036 (Version 1)
Quarter: 2021Q1

REPORT INFORMATION
  Report Type: Spontaneous
  Country: US (occurrence: US)
  Receive Date: 20210216
  Receipt Date: 20210216
  Transmission Date: 20210420
  Serious: Yes (Hospitalization)
  Sender: FDA-Public Use
  Company Number: US-GLAXOSMITHKLINE-US2021038002

PATIENT
  Age: 54 Year
  Sex: Female

DRUGS (1)
  1. TRELEGY ELLIPTA [Suspect]
     Active Substance: FLUTICASONE FUROATE\UMECLIDINIUM BROMIDE\VILANTEROL TRIFENATATE
     Indication: PRODUCT USED FOR UNKNOWN INDICATION
     Dosage: UNK,100/62.5/25MCG INH
     Dates: start: 20180101

REACTIONS (4)
  - Chest pain [Recovered/Resolved with Sequelae]
  - Product dose omission issue [Unknown]
  - Dyspepsia [Unknown]
  - Cholelithiasis [Unknown]

NARRATIVE: CASE EVENT DATE: 2020
